FAERS Safety Report 21946230 (Version 1)
Quarter: 2023Q1

REPORT INFORMATION
  Report Type: Spontaneous
  Country: US (occurrence: None)
  Receive Date: 20230202
  Receipt Date: 20230202
  Transmission Date: 20230418
  Serious: Yes (Hospitalization, Other)
  Sender: FDA-Public Use
  Company Number: None

PATIENT
  Age: 40 Year
  Sex: Female
  Weight: 94.5 kg

DRUGS (7)
  1. MOUNJARO [Suspect]
     Active Substance: TIRZEPATIDE
     Indication: Diabetes mellitus
  2. ATIVAN [Concomitant]
     Active Substance: LORAZEPAM
  3. METFORMIN [Concomitant]
     Active Substance: METFORMIN HYDROCHLORIDE
  4. EFFEXOR [Concomitant]
     Active Substance: VENLAFAXINE HYDROCHLORIDE
  5. UNSPECIFIED INGREDIENT [Concomitant]
     Active Substance: UNSPECIFIED INGREDIENT
  6. CLONIDINE [Concomitant]
     Active Substance: CLONIDINE
  7. MOUNJARO [Suspect]
     Active Substance: TIRZEPATIDE
     Indication: Weight decreased

REACTIONS (8)
  - Ischaemic hepatitis [None]
  - Haematemesis [None]
  - Gastrointestinal haemorrhage [None]
  - Dyspepsia [None]
  - Back pain [None]
  - Dehydration [None]
  - Blood magnesium decreased [None]
  - Blood potassium decreased [None]

NARRATIVE: CASE EVENT DATE: 20230116
